FAERS Safety Report 9229235 (Version 1)
Quarter: 2013Q2

REPORT INFORMATION
  Report Type: Spontaneous
  Country: US (occurrence: US)
  Receive Date: 20130412
  Receipt Date: 20130412
  Transmission Date: 20140414
  Serious: No
  Sender: FDA-Public Use
  Company Number: US-ASTELLAS-2012US011711

PATIENT
  Age: 52 Year
  Sex: Male

DRUGS (2)
  1. PROGRAF [Suspect]
     Indication: LIVER TRANSPLANT
     Dosage: 1 MG, BID
     Route: 048
     Dates: start: 20100208
  2. PROGRAF [Suspect]
     Dosage: 0.5 MG AM, 1 MG PM
     Route: 048
     Dates: start: 20100208

REACTIONS (1)
  - Nausea [Unknown]
